FAERS Safety Report 8194664-7 (Version None)
Quarter: 2012Q1

REPORT INFORMATION
  Report Type: 
  Country: None (occurrence: None)
  Receive Date: 20120308
  Receipt Date: 20070509
  Transmission Date: 20120608
  Serious: No
  Sender: FDA-Public Use
  Company Number: US-GLAXOSMITHKLINE-A0645167A

PATIENT
  Age: 38 Year
  Sex: Female

DRUGS (1)
  1. NICORETTE [Suspect]
     Indication: EX-TOBACCO USER

REACTIONS (3)
  - PRODUCT QUALITY ISSUE [None]
  - ORAL PAIN [None]
  - GINGIVAL PAIN [None]
